FAERS Safety Report 8788516 (Version 1)
Quarter: 2012Q4

REPORT INFORMATION
  Report Type: 
  Country: US (occurrence: US)
  Receive Date: 20120914
  Receipt Date: 20120914
  Transmission Date: 20130627
  Serious: Yes (Hospitalization)
  Sender: FDA-Public Use
  Company Number: US-VERTEX PHARMACEUTICAL INC.-2012-019734

PATIENT
  Age: 61 Year
  Sex: Male
  Weight: 92.63 kg

DRUGS (5)
  1. VX-950 [Suspect]
     Indication: HEPATITIS C
     Dosage: 750 mg, tid
     Route: 048
  2. PEGASYS PROCLICK [Concomitant]
     Indication: HEPATITIS C
  3. RIBAVIRIN [Concomitant]
     Indication: HEPATITIS C
     Dosage: 200 mg, UNK
  4. LISINOPRIL [Concomitant]
     Dosage: 10 mg, UNK
  5. PRILOSEC                           /00661201/ [Concomitant]
     Dosage: 10 mg, UNK

REACTIONS (1)
  - Haemoglobin decreased [Recovered/Resolved]
